FAERS Safety Report 6957715-0 (Version None)
Quarter: 2010Q3

REPORT INFORMATION
  Report Type: 
  Country: None (occurrence: None)
  Receive Date: 20100826
  Receipt Date: 20100812
  Transmission Date: 20110219
  Serious: Yes (Other)
  Sender: FDA-Public Use
  Company Number: A-NJ2009-30986

PATIENT
  Age: 30 Year
  Sex: Female
  Weight: 89.3 kg

DRUGS (11)
  1. TRACLEER [Suspect]
     Indication: PULMONARY ARTERIAL HYPERTENSION
     Dosage: ORAL; 125 MG, BID, ORAL
     Route: 048
     Dates: start: 20080626, end: 20091111
  2. TRACLEER [Suspect]
  3. REMODULIN [Concomitant]
  4. PROCARDIA [Concomitant]
  5. LOVENOX [Concomitant]
  6. LORTAB (PARACETAMOL, HYDROCODONE BITARTATE) [Concomitant]
  7. PENERGAN (PROMETHAZINE) [Concomitant]
  8. LASIX [Concomitant]
  9. KEFLEX [Concomitant]
  10. PRILOSEC (OMEPRAZOLE) [Concomitant]
  11. POTASSIUM (POTASSIUM) [Concomitant]

REACTIONS (3)
  - DRUG EXPOSURE DURING PREGNANCY [None]
  - PREGNANCY [None]
  - PREMATURE LABOUR [None]
